FAERS Safety Report 7677779-9 (Version None)
Quarter: 2011Q3

REPORT INFORMATION
  Report Type: 
  Country: None (occurrence: None)
  Receive Date: 20110808
  Receipt Date: 20110722
  Transmission Date: 20111222
  Serious: Yes (Other)
  Sender: FDA-Public Use
  Company Number: AUR-APL-2011-04344

PATIENT
  Age: 39 Year
  Sex: Male

DRUGS (6)
  1. CITALOPRAM HYDROBROMIDE [Suspect]
     Indication: PRODUCT USED FOR UNKNOWN INDICATION
  2. DIAZEPAM [Suspect]
     Indication: PRODUCT USED FOR UNKNOWN INDICATION
  3. ZOPICLONE (ZOPICLONE) [Suspect]
     Indication: PRODUCT USED FOR UNKNOWN INDICATION
  4. LANSOPRAZOLE [Suspect]
     Indication: PRODUCT USED FOR UNKNOWN INDICATION
  5. CLOPIXOL (ZUCLOPENTHIXOL) [Concomitant]
  6. RISPERIDONE [Concomitant]

REACTIONS (5)
  - LOSS OF CONSCIOUSNESS [None]
  - BALANCE DISORDER [None]
  - FALL [None]
  - CONFUSIONAL STATE [None]
  - THERMAL BURN [None]
